FAERS Safety Report 6997451-8 (Version None)
Quarter: 2010Q3

REPORT INFORMATION
  Report Type: 
  Country: None (occurrence: None)
  Receive Date: 20100918
  Receipt Date: 20091019
  Transmission Date: 20110219
  Serious: No
  Sender: FDA-Public Use
  Company Number: US-WYE-H11743509

PATIENT
  Sex: Female
  Weight: 61.29 kg

DRUGS (4)
  1. PRISTIQ [Suspect]
     Indication: DEPRESSION
     Route: 048
     Dates: start: 20091012
  2. METHADONE [Concomitant]
  3. KLONOPIN [Concomitant]
  4. SEROQUEL [Concomitant]

REACTIONS (4)
  - ANXIETY [None]
  - DISORIENTATION [None]
  - DISTURBANCE IN ATTENTION [None]
  - FATIGUE [None]
